FAERS Safety Report 22110899 (Version 4)
Quarter: 2023Q4

REPORT INFORMATION
  Report Type: Spontaneous
  Country: US (occurrence: US)
  Receive Date: 20230317
  Receipt Date: 20231222
  Transmission Date: 20240109
  Serious: Yes (Hospitalization)
  Sender: FDA-Public Use
  Company Number: US-PFIZER INC-PV202300005371

PATIENT
  Age: 78 Year
  Sex: Female
  Weight: 68.95 kg

DRUGS (3)
  1. IBRANCE [Suspect]
     Active Substance: PALBOCICLIB
     Indication: Breast cancer female
     Dosage: 100 MG, CYCLIC (3 WEEKS ON AND 1 WEEK OFF)
     Dates: start: 202201
  2. IBRANCE [Suspect]
     Active Substance: PALBOCICLIB
     Dosage: 125 MG OR 150 MG, CYCLIC (3 WEEKS ON AND 1 WEEK OFF)
  3. IBRANCE [Suspect]
     Active Substance: PALBOCICLIB
     Dosage: 100 MG, CYCLIC, 1 TABLET ORALLY DAILY FOR 14 DAYS, THEN OFF FOR 14 DAYS
     Route: 048

REACTIONS (6)
  - White blood cell count decreased [Unknown]
  - Blood calcium decreased [Unknown]
  - Neoplasm progression [Unknown]
  - Anaemia [Unknown]
  - Off label use [Unknown]
  - Off label use [Unknown]

NARRATIVE: CASE EVENT DATE: 20220301
